FAERS Safety Report 19870497 (Version 2)
Quarter: 2021Q3

REPORT INFORMATION
  Report Type: Spontaneous
  Country: AT (occurrence: AT)
  Receive Date: 20210922
  Receipt Date: 20210923
  Transmission Date: 20211014
  Serious: Yes (Life-Threatening, Other)
  Sender: FDA-Public Use
  Company Number: AT-PFIZER INC-202101206821

PATIENT
  Age: 12 Year
  Sex: Male
  Weight: 34.5 kg

DRUGS (2)
  1. METHOTREXATE SODIUM. [Suspect]
     Active Substance: METHOTREXATE SODIUM
     Dosage: PROLONGED EXPOSURE TO MTX
  2. METHOTREXATE SODIUM. [Suspect]
     Active Substance: METHOTREXATE SODIUM
     Indication: PRECURSOR B-LYMPHOBLASTIC LYMPHOMA
     Dosage: 5 G/M2 E.V., IN 24 H SECOND COURSE

REACTIONS (1)
  - Toxicity to various agents [Recovered/Resolved]
